FAERS Safety Report 9381946 (Version 1)
Quarter: 2013Q3

REPORT INFORMATION
  Report Type: Spontaneous
  Country: US (occurrence: US)
  Receive Date: 20130703
  Receipt Date: 20130703
  Transmission Date: 20140515
  Serious: Yes (Hospitalization)
  Sender: FDA-Public Use
  Company Number: US-INCYTE CORPORATION-2013IN000805

PATIENT
  Sex: Female

DRUGS (2)
  1. JAKAFI [Suspect]
     Indication: MYELOFIBROSIS
     Dosage: 20 MG, BID
     Route: 048
     Dates: start: 20121022
  2. JAKAFI [Suspect]
     Indication: SPLENOMEGALY
     Dosage: 20 MG, BID X 15 DAYS
     Route: 048

REACTIONS (1)
  - Splenectomy [Unknown]
